FAERS Safety Report 12832347 (Version 1)
Quarter: 2016Q4

REPORT INFORMATION
  Report Type: Spontaneous
  Country: US (occurrence: US)
  Receive Date: 20161010
  Receipt Date: 20161010
  Transmission Date: 20170207
  Serious: No
  Sender: FDA-Public Use
  Company Number: US-JAZZ-2016-US-013012

PATIENT
  Sex: Female

DRUGS (42)
  1. XYREM [Suspect]
     Active Substance: SODIUM OXYBATE
     Indication: NARCOLEPSY
     Dosage: 2.25 G, BID
     Route: 048
     Dates: start: 201507, end: 201507
  2. MELOXICAM. [Concomitant]
     Active Substance: MELOXICAM
  3. MEDROL [Concomitant]
     Active Substance: METHYLPREDNISOLONE
  4. PROPRANOLOL [Concomitant]
     Active Substance: PROPRANOLOL\PROPRANOLOL HYDROCHLORIDE
  5. REQUIP [Concomitant]
     Active Substance: ROPINIROLE HYDROCHLORIDE
  6. SIMVASTATIN. [Concomitant]
     Active Substance: SIMVASTATIN
  7. TOPAMAX [Concomitant]
     Active Substance: TOPIRAMATE
  8. XYREM [Suspect]
     Active Substance: SODIUM OXYBATE
     Dosage: DOSE ADJUSTMENTS
     Route: 048
     Dates: start: 201507, end: 201606
  9. ALBUTEROL SULFATE. [Concomitant]
     Active Substance: ALBUTEROL SULFATE
  10. FLEXERIL [Concomitant]
     Active Substance: CYCLOBENZAPRINE HYDROCHLORIDE
  11. DULOXETINE HCL [Concomitant]
     Active Substance: DULOXETINE HYDROCHLORIDE
  12. LOMOTIL [Concomitant]
     Active Substance: ATROPINE SULFATE\DIPHENOXYLATE HYDROCHLORIDE
  13. SPIRONOLACTONE. [Concomitant]
     Active Substance: SPIRONOLACTONE
  14. NORVASC [Concomitant]
     Active Substance: AMLODIPINE BESYLATE
  15. PROMETHAZINE [Concomitant]
     Active Substance: PROMETHAZINE\PROMETHAZINE HYDROCHLORIDE
  16. ADVAIR HFA [Concomitant]
     Active Substance: FLUTICASONE PROPIONATE\SALMETEROL XINAFOATE
  17. NAPROXEN. [Concomitant]
     Active Substance: NAPROXEN
  18. MIRAPEX [Concomitant]
     Active Substance: PRAMIPEXOLE DIHYDROCHLORIDE
  19. VENTOLIN HFA [Concomitant]
     Active Substance: ALBUTEROL SULFATE
  20. CLOBETASOL [Concomitant]
     Active Substance: CLOBETASOL
  21. FLUTICASONE PROPIONATE. [Concomitant]
     Active Substance: FLUTICASONE PROPIONATE
  22. ADDERALL [Concomitant]
     Active Substance: AMPHETAMINE ASPARTATE\AMPHETAMINE SULFATE\DEXTROAMPHETAMINE SACCHARATE\DEXTROAMPHETAMINE SULFATE
  23. HORIZANT [Concomitant]
     Active Substance: GABAPENTIN ENACARBIL
  24. CHANTIX [Concomitant]
     Active Substance: VARENICLINE TARTRATE
  25. DICYCLOMINE [Concomitant]
     Active Substance: DICYCLOMINE HYDROCHLORIDE
  26. OMEPRAZOLE. [Concomitant]
     Active Substance: OMEPRAZOLE
  27. CLONIDINE HCL [Concomitant]
     Active Substance: CLONIDINE HYDROCHLORIDE
  28. XYREM [Suspect]
     Active Substance: SODIUM OXYBATE
     Dosage: 3.5 G, BID
     Route: 048
     Dates: start: 201606
  29. CYCLOBENZAPRINE [Concomitant]
     Active Substance: CYCLOBENZAPRINE
  30. FLOVENT HFA [Concomitant]
     Active Substance: FLUTICASONE PROPIONATE
  31. NUVIGIL [Concomitant]
     Active Substance: ARMODAFINIL
  32. CLARITIN [Concomitant]
     Active Substance: LORATADINE
  33. DIOVAN [Concomitant]
     Active Substance: VALSARTAN
  34. LORATADINE. [Concomitant]
     Active Substance: LORATADINE
  35. HYOSCYAMINE. [Concomitant]
     Active Substance: HYOSCYAMINE
  36. GABAPENTIN. [Concomitant]
     Active Substance: GABAPENTIN
  37. TYLENOL EXTRA STRENGTH [Concomitant]
     Active Substance: ACETAMINOPHEN
  38. KLONOPIN [Concomitant]
     Active Substance: CLONAZEPAM
  39. PREMARIN [Concomitant]
     Active Substance: ESTROGENS, CONJUGATED
  40. ASPIRIN. [Concomitant]
     Active Substance: ASPIRIN
  41. TRAMADOL HCL [Concomitant]
     Active Substance: TRAMADOL HYDROCHLORIDE
  42. CEPHALEXIN. [Concomitant]
     Active Substance: CEPHALEXIN

REACTIONS (4)
  - Asthma [Not Recovered/Not Resolved]
  - Pain [Unknown]
  - Adrenomegaly [Not Recovered/Not Resolved]
  - Hepatic enzyme abnormal [Not Recovered/Not Resolved]
